FAERS Safety Report 19705237 (Version 2)
Quarter: 2021Q3

REPORT INFORMATION
  Report Type: Report from Study
  Country: DE (occurrence: DE)
  Receive Date: 20210816
  Receipt Date: 20210819
  Transmission Date: 20211014
  Serious: Yes (Hospitalization, Other)
  Sender: FDA-Public Use
  Company Number: NVSC2020DE221723

PATIENT
  Age: 64 Year
  Sex: Male
  Weight: 153 kg

DRUGS (4)
  1. HUMALOG MIX75/25 [Concomitant]
     Active Substance: INSULIN LISPRO
     Indication: PRODUCT USED FOR UNKNOWN INDICATION
     Dosage: 300 IU
     Route: 065
  2. OXYCODON [Concomitant]
     Active Substance: OXYCODONE
     Indication: PRODUCT USED FOR UNKNOWN INDICATION
     Dosage: 5 MG
     Route: 065
  3. TORASEMIDE [Concomitant]
     Active Substance: TORSEMIDE
     Indication: PRODUCT USED FOR UNKNOWN INDICATION
     Dosage: UNK
     Route: 065
  4. COSENTYX [Suspect]
     Active Substance: SECUKINUMAB
     Indication: PSORIASIS
     Dosage: 300 MG, QMO
     Route: 058
     Dates: start: 20181127

REACTIONS (17)
  - Dyspnoea [Unknown]
  - Urine output increased [Unknown]
  - Urinary tract infection [Recovered/Resolved]
  - Rectal haemorrhage [Unknown]
  - Oedema peripheral [Unknown]
  - Anal incontinence [Unknown]
  - Acute myocardial infarction [Unknown]
  - Angina pectoris [Unknown]
  - Chromaturia [Unknown]
  - Pupils unequal [Unknown]
  - Abnormal faeces [Unknown]
  - Cardiac failure [Recovered/Resolved]
  - Acute coronary syndrome [Unknown]
  - Atrial fibrillation [Unknown]
  - Adenoma benign [Unknown]
  - Dysuria [Unknown]
  - Thrombosis [Unknown]

NARRATIVE: CASE EVENT DATE: 202006
